FAERS Safety Report 4478429-5 (Version None)
Quarter: 2004Q4

REPORT INFORMATION
  Report Type: 
  Country: None (occurrence: None)
  Receive Date: 20041019
  Receipt Date: 20041011
  Transmission Date: 20050328
  Serious: Yes (Other)
  Sender: FDA-Public Use
  Company Number: US-JNJFOC-20041003702

PATIENT
  Age: 36 Year
  Sex: Female

DRUGS (2)
  1. RISPERDAL [Suspect]
     Indication: POST-TRAUMATIC STRESS DISORDER
     Route: 049
     Dates: start: 20040901
  2. ZOLOFT [Concomitant]

REACTIONS (1)
  - BREAST CANCER FEMALE [None]
